FAERS Safety Report 7152352-X (Version None)
Quarter: 2010Q4

REPORT INFORMATION
  Report Type: 
  Country: None (occurrence: None)
  Receive Date: 20101209
  Receipt Date: 20101209
  Transmission Date: 20110411
  Serious: Yes (Hospitalization, Disabling)
  Sender: FDA-Public Use
  Company Number: None

PATIENT
  Age: 69 Year
  Sex: Female
  Weight: 56.6996 kg

DRUGS (3)
  1. FOSAMAX [Suspect]
     Indication: OSTEOPENIA
     Dosage: 70MG 1X/WK. P.O.
     Route: 048
     Dates: start: 20010911, end: 20100914
  2. LIPITOR [Concomitant]
  3. CITRACAL [Concomitant]

REACTIONS (2)
  - FEMUR FRACTURE [None]
  - PAIN [None]
